FAERS Safety Report 18478556 (Version 1)
Quarter: 2020Q4

REPORT INFORMATION
  Report Type: Other
  Country: CA (occurrence: CA)
  Receive Date: 20201109
  Receipt Date: 20201109
  Transmission Date: 20210114
  Serious: Yes (Death, Hospitalization)
  Sender: FDA-Public Use
  Company Number: CA-CELLTRION INC.-2020CA030755

PATIENT

DRUGS (12)
  1. RITUXIMAB (UNKNOWN) [Suspect]
     Active Substance: RITUXIMAB
     Indication: SYSTEMIC LUPUS ERYTHEMATOSUS
     Dosage: 1000 MILLIGRAM
     Route: 042
  2. RITUXIMAB (UNKNOWN) [Suspect]
     Active Substance: RITUXIMAB
     Indication: IMMUNE THROMBOCYTOPENIA
     Dosage: UNK
     Route: 042
  3. LUPRON [Concomitant]
     Active Substance: LEUPROLIDE ACETATE
     Dosage: UNK, 1 EVERY 3 MONTHS
     Route: 065
  4. METHYLPREDNISOLONE SODIUM SUCCINATE. [Concomitant]
     Active Substance: METHYLPREDNISOLONE SODIUM SUCCINATE
     Indication: PREMEDICATION
     Dosage: 100 MILLIGRAM
     Route: 042
  5. PERINDOPRIL [Concomitant]
     Active Substance: PERINDOPRIL
  6. SYNTHROID [Concomitant]
     Active Substance: LEVOTHYROXINE SODIUM
  7. HYDROXYCHLOROQUINE SULFATE. [Concomitant]
     Active Substance: HYDROXYCHLOROQUINE SULFATE
  8. WARFARIN [Concomitant]
     Active Substance: WARFARIN
  9. ZOPICLONE [Concomitant]
     Active Substance: ZOPICLONE
  10. BENADRYL [Concomitant]
     Active Substance: DIPHENHYDRAMINE HYDROCHLORIDE
     Indication: PREMEDICATION
     Dosage: 50 MILLIGRAM
     Route: 048
  11. PREDNISONE. [Concomitant]
     Active Substance: PREDNISONE
     Route: 065
  12. TYLENOL [Concomitant]
     Active Substance: ACETAMINOPHEN
     Indication: PREMEDICATION
     Dosage: 650 MILLIGRAM
     Route: 048

REACTIONS (14)
  - Perfume sensitivity [Fatal]
  - Infusion related reaction [Fatal]
  - Viral infection [Fatal]
  - Off label use [Fatal]
  - Heart rate increased [Fatal]
  - Neutropenia [Fatal]
  - Blood pressure diastolic increased [Fatal]
  - Headache [Fatal]
  - Influenza [Fatal]
  - Blood pressure systolic increased [Fatal]
  - Blood pressure systolic abnormal [Fatal]
  - Oxygen saturation decreased [Fatal]
  - Pyrexia [Fatal]
  - Intentional product use issue [Fatal]
